FAERS Safety Report 8398728 (Version 4)
Quarter: 2014Q4

REPORT INFORMATION
  Report Type: Spontaneous
  Country: US (occurrence: US)
  Receive Date: 20120209
  Receipt Date: 20141121
  Transmission Date: 20150529
  Serious: Yes (Other)
  Sender: FDA-Public Use
  Company Number: US-ASTRAZENECA-2012SE06267

PATIENT
  Age: 83 Year
  Sex: Female

DRUGS (15)
  1. ATACAND [Suspect]
     Active Substance: CANDESARTAN CILEXETIL
     Indication: CARDIAC DISORDER
     Route: 048
  2. SEVEN OTHER MEDICATIONS [Concomitant]
     Indication: ANEURYSM
  3. SEVEN OTHER MEDICATIONS [Concomitant]
     Indication: CARDIAC FAILURE CONGESTIVE
  4. TOPROL XL [Suspect]
     Active Substance: METOPROLOL SUCCINATE
     Indication: BLOOD PRESSURE
     Route: 048
     Dates: start: 201112
  5. SEVEN OTHER MEDICATIONS [Concomitant]
     Indication: CARDIAC DISORDER
  6. PLAVIX [Concomitant]
     Active Substance: CLOPIDOGREL BISULFATE
     Indication: STENT PLACEMENT
  7. ZOLEPEDIM [Concomitant]
     Indication: INSOMNIA
  8. CLORCOM, POTASSIUM FOROSIMIDE [Concomitant]
  9. ATACAND [Suspect]
     Active Substance: CANDESARTAN CILEXETIL
     Indication: BLOOD PRESSURE
     Route: 048
  10. ATACAND [Suspect]
     Active Substance: CANDESARTAN CILEXETIL
     Indication: CARDIAC DISORDER
     Route: 048
  11. ATACAND [Suspect]
     Active Substance: CANDESARTAN CILEXETIL
     Indication: MYOCARDIAL INFARCTION
     Route: 048
  12. ATACAND [Suspect]
     Active Substance: CANDESARTAN CILEXETIL
     Indication: MYOCARDIAL INFARCTION
     Route: 048
  13. ATACAND [Suspect]
     Active Substance: CANDESARTAN CILEXETIL
     Indication: BLOOD PRESSURE
     Route: 048
  14. NEXIUM [Suspect]
     Active Substance: ESOMEPRAZOLE MAGNESIUM
     Route: 048
     Dates: start: 2002
  15. ACIPHEX [Concomitant]
     Active Substance: RABEPRAZOLE SODIUM
     Indication: DYSPEPSIA
     Dates: start: 2002

REACTIONS (10)
  - Ophthalmoplegia [Unknown]
  - Malaise [Unknown]
  - Cerebrovascular accident [Unknown]
  - Body height decreased [Not Recovered/Not Resolved]
  - Transient ischaemic attack [Unknown]
  - Nerve injury [Unknown]
  - Myocardial infarction [Unknown]
  - Visual acuity reduced [Unknown]
  - Eyelid pain [Unknown]
  - Eye injury [Unknown]

NARRATIVE: CASE EVENT DATE: 2002
